FAERS Safety Report 4744639-2 (Version None)
Quarter: 2005Q3

REPORT INFORMATION
  Report Type: 
  Country: None (occurrence: None)
  Receive Date: 20050812
  Receipt Date: 20050812
  Transmission Date: 20060218
  Serious: Yes (Death, Hospitalization)
  Sender: FDA-Public Use
  Company Number: None

PATIENT
  Age: 83 Year
  Sex: Female
  Weight: 64.1 kg

DRUGS (10)
  1. CIPRO [Suspect]
     Indication: URINARY TRACT INFECTION
     Dosage: 500 MG   BID   ORAL
     Route: 048
     Dates: start: 20050731, end: 20050806
  2. TRIAMCINOLONE [Concomitant]
  3. ADVAIR DISKUS 100/50 [Concomitant]
  4. ISOSORBIDE MONONITRATE [Concomitant]
  5. APAP #3 [Concomitant]
  6. SIMVASTATIN [Concomitant]
  7. LISINOPRIL [Concomitant]
  8. ATENOLOL [Concomitant]
  9. HYDROCHLOROTHIAZIDE [Concomitant]
  10. PROMETHAZINE [Concomitant]

REACTIONS (5)
  - HEADACHE [None]
  - PHOTOSENSITIVITY REACTION [None]
  - PYREXIA [None]
  - RENAL FAILURE ACUTE [None]
  - STEVENS-JOHNSON SYNDROME [None]
